FAERS Safety Report 9542824 (Version 1)
Quarter: 2013Q3

REPORT INFORMATION
  Report Type: Spontaneous
  Country: US (occurrence: US)
  Receive Date: 20130923
  Receipt Date: 20130923
  Transmission Date: 20140515
  Serious: No
  Sender: FDA-Public Use
  Company Number: US-PFIZER INC-2013272653

PATIENT
  Age: 71 Year
  Sex: Female
  Weight: 68.03 kg

DRUGS (2)
  1. GABAPENTIN [Suspect]
     Indication: NECK PAIN
     Dosage: 100 MG, 1X/DAY
     Route: 048
     Dates: start: 20130830
  2. HYDROCODONE [Concomitant]
     Dosage: UNK

REACTIONS (2)
  - Off label use [Unknown]
  - Tinnitus [Unknown]
